FAERS Safety Report 6500956-7 (Version None)
Quarter: 2009Q4

REPORT INFORMATION
  Report Type: 
  Country: None (occurrence: None)
  Receive Date: 20091216
  Receipt Date: 20090504
  Transmission Date: 20100525
  Serious: No
  Sender: FDA-Public Use
  Company Number: A0782237A

PATIENT
  Age: 60 Year
  Sex: Female

DRUGS (1)
  1. COMMIT [Suspect]
     Dates: start: 20090422, end: 20090422

REACTIONS (4)
  - MALAISE [None]
  - NAUSEA [None]
  - RETCHING [None]
  - TREATMENT NONCOMPLIANCE [None]
